FAERS Safety Report 19416277 (Version 1)
Quarter: 2021Q2

REPORT INFORMATION
  Report Type: Spontaneous
  Country: US (occurrence: US)
  Receive Date: 20210615
  Receipt Date: 20210615
  Transmission Date: 20210717
  Serious: No
  Sender: FDA-Public Use
  Company Number: US-ALLERGAN-2108375US

PATIENT
  Sex: Female

DRUGS (1)
  1. KYBELLA [Suspect]
     Active Substance: DEOXYCHOLIC ACID
     Indication: PRODUCT USED FOR UNKNOWN INDICATION
     Dosage: UNK, SINGLE
     Route: 058
     Dates: start: 20201231, end: 20201231

REACTIONS (6)
  - Swelling [Not Recovered/Not Resolved]
  - Pustule [Not Recovered/Not Resolved]
  - Granuloma skin [Recovering/Resolving]
  - Acid fast bacilli infection [Not Recovered/Not Resolved]
  - Hypersensitivity [Not Recovered/Not Resolved]
  - Skin mass [Recovering/Resolving]

NARRATIVE: CASE EVENT DATE: 2020
